FAERS Safety Report 13400027 (Version 2)
Quarter: 2017Q2

REPORT INFORMATION
  Report Type: Spontaneous
  Country: TR (occurrence: TR)
  Receive Date: 20170404
  Receipt Date: 20170501
  Transmission Date: 20170830
  Serious: Yes (Death, Life-Threatening, Hospitalization, Congenital Anomaly, Other)
  Sender: FDA-Public Use
  Company Number: TR-SUN PHARMACEUTICAL INDUSTRIES LTD-2017R1-137418

PATIENT
  Sex: Male
  Weight: 1.7 kg

DRUGS (1)
  1. VALPROIC ACID. [Suspect]
     Active Substance: VALPROIC ACID
     Indication: PRODUCT USED FOR UNKNOWN INDICATION
     Dosage: 500 MG, QD
     Route: 064

REACTIONS (15)
  - Limb deformity [Unknown]
  - Gastric volvulus [Unknown]
  - Hand deformity [Unknown]
  - Dysmorphism [Unknown]
  - Patent ductus arteriosus [Not Recovered/Not Resolved]
  - Limb hypoplasia congenital [Unknown]
  - Hiatus hernia [Unknown]
  - Pulmonary hypertension [Not Recovered/Not Resolved]
  - Choroidal coloboma [Unknown]
  - Foetal exposure during pregnancy [Unknown]
  - Foetal anticonvulsant syndrome [Unknown]
  - Ectopic kidney [Unknown]
  - Retinal coloboma [Unknown]
  - Respiratory distress [Fatal]
  - Pulmonary hypoplasia [Fatal]
